FAERS Safety Report 15623365 (Version 3)
Quarter: 2019Q3

REPORT INFORMATION
  Report Type: Spontaneous
  Country: US (occurrence: US)
  Receive Date: 20181115
  Receipt Date: 20190716
  Transmission Date: 20191004
  Serious: No
  Sender: FDA-Public Use
  Company Number: US-PFIZER INC-2018468831

PATIENT
  Age: 78 Year
  Sex: Female

DRUGS (16)
  1. PREMPRO [Suspect]
     Active Substance: ESTROGENS, CONJUGATED\MEDROXYPROGESTERONE ACETATE
     Dosage: UNK
     Dates: end: 2015
  2. DULOXETINE DR [Concomitant]
     Active Substance: DULOXETINE
     Indication: HOT FLUSH
     Dosage: 40 MG, 1X/DAY (40 MG 1X AM)
     Dates: start: 20190312
  3. DULOXETINE DR [Concomitant]
     Active Substance: DULOXETINE
     Indication: ARTHRALGIA
  4. ENALAPRIL [Suspect]
     Active Substance: ENALAPRIL
     Indication: BLOOD PRESSURE ABNORMAL
     Dosage: 10 MG, 2X/DAY (10 MG 1X AM + 1X PM)
     Dates: start: 20190310
  5. PRAVASTATIN. [Concomitant]
     Active Substance: PRAVASTATIN
     Indication: BLOOD CHOLESTEROL ABNORMAL
     Dosage: 40 MG, 1X/DAY (40 MG 1 X PM)
     Dates: start: 20180310
  6. CELEBREX [Suspect]
     Active Substance: CELECOXIB
     Indication: SWELLING
  7. CELEBREX [Suspect]
     Active Substance: CELECOXIB
     Indication: MUSCULOSKELETAL STIFFNESS
  8. ALENDRONATE [Suspect]
     Active Substance: ALENDRONATE SODIUM
     Indication: BONE DISORDER
     Dosage: 75 MG, WEEKLY
     Dates: start: 20170824
  9. RANITIDINE. [Concomitant]
     Active Substance: RANITIDINE
     Indication: HIATUS HERNIA
     Dosage: 150 MG, AS NEEDED
     Dates: start: 20160531
  10. SYMBICORT [Concomitant]
     Active Substance: BUDESONIDE\FORMOTEROL FUMARATE DIHYDRATE
     Indication: ASTHMA
     Dosage: UNK 1X/DAY (160/4.5 NEB 2 PUFFS AM )
     Dates: start: 20181218
  11. CELEBREX [Suspect]
     Active Substance: CELECOXIB
     Indication: ARTHRITIS
     Dosage: 200 MG, 2X/DAY (200 MG 1X AM + 1X PM)
     Dates: start: 20170519
  12. ALENDRONATE [Suspect]
     Active Substance: ALENDRONATE SODIUM
     Indication: ARTHROPATHY
     Dosage: 70 MG, WEEKLY
     Dates: start: 20170824
  13. FLUTICASONE. [Suspect]
     Active Substance: FLUTICASONE
     Indication: ASTHMA
     Dosage: 50 MG, 1X/DAY (50 MG 1 SPRAY AM)
     Dates: start: 20171008
  14. CELEBREX [Suspect]
     Active Substance: CELECOXIB
     Indication: PAIN
  15. DILTIAZEM ER [Concomitant]
     Active Substance: DILTIAZEM
     Dosage: UNK
  16. PROAIR HFA [Concomitant]
     Active Substance: ALBUTEROL SULFATE
     Indication: ASTHMA
     Dosage: 2.5 MG, AS NEEDED
     Dates: start: 20180124

REACTIONS (1)
  - Memory impairment [Unknown]
